FAERS Safety Report 21986135 (Version 1)
Quarter: 2023Q1

REPORT INFORMATION
  Report Type: Spontaneous
  Country: FR (occurrence: FR)
  Receive Date: 20230213
  Receipt Date: 20230213
  Transmission Date: 20230418
  Serious: Yes (Other)
  Sender: FDA-Public Use
  Company Number: None

PATIENT
  Age: 40 Year
  Sex: Male
  Weight: 87 kg

DRUGS (5)
  1. PROPOFOL [Suspect]
     Active Substance: PROPOFOL
     Indication: Anaesthesia
     Dosage: 200 MG
     Route: 042
     Dates: start: 20221204, end: 20221204
  2. CEFAZOLIN [Suspect]
     Active Substance: CEFAZOLIN
     Indication: Prophylaxis
     Route: 042
     Dates: start: 20221204, end: 20221204
  3. KETAMINE [Suspect]
     Active Substance: KETAMINE
     Indication: Anaesthesia
     Route: 042
     Dates: start: 20221204, end: 20221204
  4. SUFENTANIL [Suspect]
     Active Substance: SUFENTANIL
     Indication: Anaesthesia
     Route: 042
     Dates: start: 20221204, end: 20221204
  5. DEXAMETHASONE [Suspect]
     Active Substance: DEXAMETHASONE
     Indication: Anaesthesia
     Route: 042
     Dates: start: 20221204, end: 20221204

REACTIONS (1)
  - Anaphylactic shock [Recovered/Resolved]

NARRATIVE: CASE EVENT DATE: 20221204
